FAERS Safety Report 19288895 (Version 1)
Quarter: 2021Q2

REPORT INFORMATION
  Report Type: Spontaneous
  Country: US (occurrence: US)
  Receive Date: 20210521
  Receipt Date: 20210521
  Transmission Date: 20210717
  Serious: Yes (Hospitalization, Other)
  Sender: FDA-Public Use
  Company Number: US-GLAXOSMITHKLINE-US2021103555

PATIENT
  Age: 69 Year
  Sex: Male

DRUGS (1)
  1. ADVAIR HFA [Suspect]
     Active Substance: FLUTICASONE PROPIONATE\SALMETEROL XINAFOATE
     Indication: CHRONIC OBSTRUCTIVE PULMONARY DISEASE
     Dosage: 2 PUFF(S), BID
     Route: 048
     Dates: start: 2018

REACTIONS (3)
  - Cardiac ablation [Recovered/Resolved]
  - Dyspnoea [Not Recovered/Not Resolved]
  - Diaphragmatic injury [Unknown]

NARRATIVE: CASE EVENT DATE: 20210504
